FAERS Safety Report 6554875-0 (Version None)
Quarter: 2010Q1

REPORT INFORMATION
  Report Type: 
  Country: None (occurrence: None)
  Receive Date: 20100127
  Receipt Date: 20100122
  Transmission Date: 20100710
  Serious: Yes (Hospitalization)
  Sender: FDA-Public Use
  Company Number: ES-MERCK-1001ESP00031

PATIENT
  Age: 55 Year
  Sex: Female

DRUGS (11)
  1. JANUVIA [Suspect]
     Indication: TYPE 2 DIABETES MELLITUS
     Route: 048
     Dates: start: 20091201, end: 20091201
  2. SINTROM [Concomitant]
     Route: 048
  3. BONIVA [Concomitant]
     Route: 048
  4. ACFOL [Concomitant]
     Route: 048
  5. TARDYFERON [Concomitant]
     Route: 048
  6. CALCIUM FORTE (CALCIUM GLUBIONATE) [Concomitant]
     Route: 048
  7. TORSEMIDE [Concomitant]
     Route: 048
  8. SECALIP [Concomitant]
     Route: 065
  9. COZAAR [Concomitant]
     Route: 048
  10. ORFIDAL [Concomitant]
     Route: 048
  11. EUGLUCON [Concomitant]
     Indication: TYPE 2 DIABETES MELLITUS
     Route: 048
     Dates: end: 20091201

REACTIONS (3)
  - DIARRHOEA [None]
  - NAUSEA [None]
  - VOMITING [None]
